FAERS Safety Report 11814165 (Version 1)
Quarter: 2015Q4

REPORT INFORMATION
  Report Type: Spontaneous
  Country: JP (occurrence: JP)
  Receive Date: 20151209
  Receipt Date: 20151209
  Transmission Date: 20160305
  Serious: Yes (Life-Threatening, Hospitalization)
  Sender: FDA-Public Use
  Company Number: JP-PFIZER INC-2015390725

PATIENT
  Age: 16 Year
  Sex: Female
  Weight: 35 kg

DRUGS (10)
  1. ADRIACIN [Suspect]
     Active Substance: DOXORUBICIN HYDROCHLORIDE
     Indication: OSTEOSARCOMA
     Dosage: 30 MG/M2, UNK
     Route: 041
     Dates: start: 20031027, end: 20040106
  2. ANHYDROUS CAFFEINE [Concomitant]
     Active Substance: CAFFEINE
     Dosage: 1500 MG/M2, UNK
     Route: 042
     Dates: start: 20031027, end: 20040305
  3. CISPLATIN. [Suspect]
     Active Substance: CISPLATIN
     Indication: OSTEOSARCOMA
     Dosage: 120 MG/M2, UNK
     Route: 041
     Dates: start: 20031027, end: 20040105
  4. IFOSFAMIDE. [Suspect]
     Active Substance: IFOSFAMIDE
     Indication: OSTEOSARCOMA
     Dosage: UNK
     Route: 041
     Dates: start: 20031027, end: 20040305
  5. METHOTREXATE [Suspect]
     Active Substance: METHOTREXATE
     Dosage: 12 G, 1X/DAY
     Route: 042
     Dates: start: 20040301, end: 20040301
  6. ETOPOSIDE. [Suspect]
     Active Substance: ETOPOSIDE
     Indication: OSTEOSARCOMA
     Dosage: UNK
     Route: 042
     Dates: start: 20031027, end: 20040305
  7. CARBOPLATIN. [Suspect]
     Active Substance: CARBOPLATIN
     Dosage: 240 MG, UNK
     Route: 042
  8. DOCETAXEL. [Suspect]
     Active Substance: DOCETAXEL
     Dosage: 120 MG, UNK
     Route: 042
     Dates: start: 20040707, end: 20070220
  9. GEMCITABINE HYDROCHLORIDE. [Suspect]
     Active Substance: GEMCITABINE HYDROCHLORIDE
     Dosage: 800 MG, UNK
     Route: 042
     Dates: start: 20040707, end: 20070220
  10. ONCOVIN [Suspect]
     Active Substance: VINCRISTINE SULFATE
     Dosage: 1.8 MG, 1X/DAY
     Route: 042
     Dates: start: 20040321, end: 20140321

REACTIONS (2)
  - Papillary thyroid cancer [Recovered/Resolved]
  - Second primary malignancy [Recovered/Resolved]

NARRATIVE: CASE EVENT DATE: 200703
